FAERS Safety Report 12575994 (Version 3)
Quarter: 2016Q3

REPORT INFORMATION
  Report Type: Report from Study
  Country: US (occurrence: US)
  Receive Date: 20160720
  Receipt Date: 20160805
  Transmission Date: 20161109
  Serious: Yes (Hospitalization, Other)
  Sender: FDA-Public Use
  Company Number: US-SAOL THERAPEUTICS-2016SAO00206

PATIENT
  Age: 20 Year
  Sex: Male

DRUGS (9)
  1. LIORESAL [Suspect]
     Active Substance: BACLOFEN
     Dosage: 424.6 ?G, \DAY
     Route: 037
     Dates: start: 20160308
  2. BENADRYL [Concomitant]
     Active Substance: DIPHENHYDRAMINE HYDROCHLORIDE
  3. PEPCID [Concomitant]
     Active Substance: FAMOTIDINE
  4. CLONAZEPAM. [Concomitant]
     Active Substance: CLONAZEPAM
  5. MIRALAX [Concomitant]
     Active Substance: POLYETHYLENE GLYCOL 3350
  6. ZOFRAN [Concomitant]
     Active Substance: ONDANSETRON HYDROCHLORIDE
  7. CLINDAMYCIN [Concomitant]
     Active Substance: CLINDAMYCIN\CLINDAMYCIN PHOSPHATE
  8. LIORESAL [Suspect]
     Active Substance: BACLOFEN
     Dosage: 459.8 ?G, \DAY
     Route: 037
     Dates: start: 2009, end: 20160704
  9. NAPROXEN. [Concomitant]
     Active Substance: NAPROXEN

REACTIONS (1)
  - Medical device site cellulitis [Recovered/Resolved]

NARRATIVE: CASE EVENT DATE: 20160702
